FAERS Safety Report 20456465 (Version 2)
Quarter: 2022Q1

REPORT INFORMATION
  Report Type: Spontaneous
  Country: US (occurrence: US)
  Receive Date: 20220210
  Receipt Date: 20220217
  Transmission Date: 20220424
  Serious: Yes (Hospitalization)
  Sender: FDA-Public Use
  Company Number: US-ALLERGAN-2204817US

PATIENT
  Sex: Female

DRUGS (2)
  1. BOTOX [Suspect]
     Active Substance: ONABOTULINUMTOXINA
     Indication: Hypertonic bladder
     Dosage: 100 UNITS, SINGLE
     Dates: start: 20220131, end: 20220131
  2. UNSPECIFIED INGREDIENT [Concomitant]
     Active Substance: UNSPECIFIED INGREDIENT

REACTIONS (4)
  - Abnormal behaviour [Unknown]
  - Psychotic disorder [Unknown]
  - Muscle spasms [Unknown]
  - Aphasia [Unknown]

NARRATIVE: CASE EVENT DATE: 20220131
